FAERS Safety Report 4576377-3 (Version None)
Quarter: 2005Q1

REPORT INFORMATION
  Report Type: 
  Country: None (occurrence: None)
  Receive Date: 20050207
  Receipt Date: 20050125
  Transmission Date: 20050727
  Serious: Yes (Other)
  Sender: FDA-Public Use
  Company Number: 2004097757

PATIENT
  Sex: Female

DRUGS (4)
  1. CELEBREX [Suspect]
     Indication: BACK PAIN
     Dosage: 400 MG (200 MG 2 IN 1 D) ORAL
     Route: 048
     Dates: end: 20021201
  2. CALCIUM                (CALCIUM) [Concomitant]
  3. HYDROCHLOROTHIAZIDE [Concomitant]
  4. CONJUGATED ESTROGENS [Concomitant]

REACTIONS (8)
  - ASTHENIA [None]
  - CONDITION AGGRAVATED [None]
  - FEELING ABNORMAL [None]
  - INFLUENZA [None]
  - LEUKOPENIA [None]
  - PHARYNGEAL OEDEMA [None]
  - SINUS TACHYCARDIA [None]
  - SWELLING FACE [None]
